FAERS Safety Report 4666141-9 (Version None)
Quarter: 2005Q2

REPORT INFORMATION
  Report Type: 
  Country: None (occurrence: None)
  Receive Date: 20050519
  Receipt Date: 20050506
  Transmission Date: 20051028
  Serious: Yes (Hospitalization, Other)
  Sender: FDA-Public Use
  Company Number: GB-JNJFOC-20050501814

PATIENT
  Age: 77 Year
  Sex: Female

DRUGS (2)
  1. RISPERDAL [Suspect]
     Indication: ABNORMAL BEHAVIOUR
     Route: 049
  2. HALDOL [Suspect]
     Indication: ABNORMAL BEHAVIOUR
     Route: 065

REACTIONS (5)
  - CEREBROVASCULAR ACCIDENT [None]
  - DRUG WITHDRAWAL SYNDROME [None]
  - EXTRAPYRAMIDAL DISORDER [None]
  - GASTROENTERITIS [None]
  - GENERAL PHYSICAL HEALTH DETERIORATION [None]
